FAERS Safety Report 7473109-6 (Version None)
Quarter: 2011Q2

REPORT INFORMATION
  Report Type: 
  Country: None (occurrence: None)
  Receive Date: 20110503
  Receipt Date: 20110419
  Transmission Date: 20111010
  Serious: Yes (Hospitalization, Other)
  Sender: FDA-Public Use
  Company Number: 2011AC000028

PATIENT
  Age: 51 Year
  Sex: Male

DRUGS (18)
  1. ROBITUSSIN W/CODEINE [Concomitant]
  2. DIGOXIN [Suspect]
     Dosage: .25 MG, QD, PO
     Route: 048
     Dates: start: 20031201, end: 20081201
  3. IV DIURETICS [Concomitant]
  4. NITROGLYCERIN [Concomitant]
  5. COMBIVENT [Concomitant]
  6. IV STEROIDS [Concomitant]
  7. NEBULIZER TREATMENTS [Concomitant]
  8. METOPROLOL SUCCINATE [Concomitant]
  9. IV ANTIBIOTICS [Concomitant]
  10. LASIX [Concomitant]
  11. ASPIRIN [Concomitant]
  12. OXYGEN [Concomitant]
  13. DIGOXIN [Suspect]
     Dosage: 0.25 MG, QD, PO
     Route: 048
     Dates: start: 20080506
  14. CIPROFLOXACIN [Concomitant]
  15. DIGOXIN [Suspect]
     Indication: CARDIAC FAILURE CONGESTIVE
     Dosage: .25 MG, IV
     Route: 042
     Dates: start: 20031209, end: 20031201
  16. LISINOPRIL [Concomitant]
  17. LIPITOR [Concomitant]
  18. NAEDTA CHELATION TREATMENTS [Concomitant]

REACTIONS (12)
  - MULTIPLE INJURIES [None]
  - URINARY TRACT INFECTION [None]
  - PAIN [None]
  - ANXIETY [None]
  - FATIGUE [None]
  - DEPRESSION [None]
  - DYSPNOEA [None]
  - ECONOMIC PROBLEM [None]
  - PARAESTHESIA [None]
  - PRODUCT QUALITY ISSUE [None]
  - DIZZINESS [None]
  - CARDIAC DISORDER [None]
